FAERS Safety Report 23061098 (Version 9)
Quarter: 2025Q4

REPORT INFORMATION
  Report Type: Report from Study
  Country: GB (occurrence: GB)
  Receive Date: 20231013
  Receipt Date: 20251009
  Transmission Date: 20260118
  Serious: Yes (Other)
  Sender: NOVARTIS
  Company Number: GB-002147023-NVSC2023GB062918

PATIENT
  Sex: Male

DRUGS (3)
  1. MAYZENT [Suspect]
     Active Substance: SIPONIMOD
     Indication: Multiple sclerosis
     Dosage: 2 MG, QD
     Route: 048
     Dates: start: 20220830
  2. MAYZENT [Suspect]
     Active Substance: SIPONIMOD
     Indication: Secondary progressive multiple sclerosis
     Dosage: UNK UNK, OTHER
     Route: 048
  3. NITROFURANTOIN [Concomitant]
     Active Substance: NITROFURANTOIN
     Indication: Product used for unknown indication
     Dosage: UNK (STARTED 2 MONTHS AGO)
     Route: 065

REACTIONS (13)
  - Kidney infection [Unknown]
  - Urinary tract infection [Unknown]
  - Influenza [Unknown]
  - Blood test abnormal [Unknown]
  - Fall [Unknown]
  - Calculus bladder [Unknown]
  - Cystitis [Unknown]
  - Chills [Unknown]
  - Body temperature increased [Unknown]
  - Norovirus infection [Unknown]
  - Alanine aminotransferase increased [Unknown]
  - Gastrointestinal pain [Unknown]
  - Vomiting [Unknown]

NARRATIVE: CASE EVENT DATE: 20240101
